FAERS Safety Report 21593322 (Version 1)
Quarter: 2022Q4

REPORT INFORMATION
  Report Type: Spontaneous
  Country: US (occurrence: US)
  Receive Date: 20221114
  Receipt Date: 20221114
  Transmission Date: 20230113
  Serious: Yes (Life-Threatening, Hospitalization, Other)
  Sender: FDA-Public Use
  Company Number: US-SUN PHARMACEUTICAL INDUSTRIES LTD-2022R1-363583

PATIENT
  Age: 78 Year
  Sex: Male

DRUGS (1)
  1. DOXYCYCLINE [Suspect]
     Active Substance: DOXYCYCLINE
     Indication: Prostatitis
     Dosage: 100 MILLIGRAM, BID
     Route: 048

REACTIONS (2)
  - Gastrointestinal haemorrhage [Unknown]
  - Gastric mucosal lesion [Unknown]
